FAERS Safety Report 4809350-8 (Version None)
Quarter: 2005Q4

REPORT INFORMATION
  Report Type: 
  Country: None (occurrence: None)
  Receive Date: 20051021
  Receipt Date: 20030305
  Transmission Date: 20060501
  Serious: No
  Sender: FDA-Public Use
  Company Number: USA030330543

PATIENT
  Age: 32 Year
  Sex: Male
  Weight: 105 kg

DRUGS (3)
  1. ZYPREXA [Suspect]
     Indication: MANIA
     Dosage: 25 MG/DAY
     Dates: start: 20020516
  2. DEPAKOTE [Concomitant]
  3. DETROL LA [Concomitant]

REACTIONS (5)
  - CONDITION AGGRAVATED [None]
  - MANIA [None]
  - PLATELET COUNT DECREASED [None]
  - SEDATION [None]
  - TACHYCARDIA [None]
